FAERS Safety Report 21891311 (Version 1)
Quarter: 2023Q1

REPORT INFORMATION
  Report Type: Spontaneous
  Country: SE (occurrence: SE)
  Receive Date: 20230120
  Receipt Date: 20230120
  Transmission Date: 20230417
  Serious: Yes (Hospitalization)
  Sender: FDA-Public Use
  Company Number: None

PATIENT
  Age: 14 Year
  Sex: Female

DRUGS (4)
  1. SERTRALINE [Suspect]
     Active Substance: SERTRALINE HYDROCHLORIDE
     Indication: Product used for unknown indication
     Dosage: DOSE 1,1 TOTAL (UNCLEAR AMOUNT)
     Route: 048
     Dates: start: 20210415, end: 20210415
  2. ATARAX [Suspect]
     Active Substance: HYDROXYZINE HYDROCHLORIDE
     Indication: Product used for unknown indication
     Dosage: DOSE1, 1 TOTAL (UNCLEAR AMOUNT)
     Route: 048
     Dates: start: 20210415, end: 20210415
  3. TRIMEPRAZINE [Suspect]
     Active Substance: TRIMEPRAZINE
     Indication: Product used for unknown indication
     Dosage: DOSE1, 1 TOTAL (UNCLEAR AMOUNT)
     Route: 048
     Dates: start: 20210415, end: 20210415
  4. LISDEXAMFETAMINE DIMESYLATE [Suspect]
     Active Substance: LISDEXAMFETAMINE DIMESYLATE
     Indication: Product used for unknown indication
     Dosage: DOSE1, 1 TOTAL (UNCLEAR AMOUNT)
     Route: 048
     Dates: start: 20210415, end: 20210415

REACTIONS (2)
  - Intentional self-injury [Unknown]
  - Intentional overdose [Unknown]

NARRATIVE: CASE EVENT DATE: 20210415
